FAERS Safety Report 11939562 (Version 1)
Quarter: 2016Q1

REPORT INFORMATION
  Report Type: Spontaneous
  Country: US (occurrence: US)
  Receive Date: 20160122
  Receipt Date: 20160122
  Transmission Date: 20160526
  Serious: No
  Sender: FDA-Public Use
  Company Number: US-PFIZER INC-2016010007

PATIENT
  Age: 61 Year
  Sex: Female

DRUGS (11)
  1. NIACIN. [Concomitant]
     Active Substance: NIACIN
     Dosage: UNK
  2. MSM [Concomitant]
     Active Substance: DIMETHYL SULFONE
     Dosage: UNK
  3. TURMERIC [Concomitant]
     Active Substance: TURMERIC
     Dosage: UNK
  4. CENTRUM ADULTS [Concomitant]
     Dosage: UNK
  5. CALCIUM+D3 [Concomitant]
     Dosage: UNK
  6. METAMUCIL [Concomitant]
     Active Substance: PLANTAGO SEED
     Dosage: UNK
  7. LETROZOLE. [Concomitant]
     Active Substance: LETROZOLE
     Dosage: UNK
  8. IBRANCE [Suspect]
     Active Substance: PALBOCICLIB
     Indication: BREAST CANCER
     Dosage: 125 MG, CYCLIC (ONE CAPSULE FOR 21 DAYS THAN 1 WEEK OFF)
     Route: 048
  9. BIOTIN [Concomitant]
     Active Substance: BIOTIN
     Dosage: UNK
  10. VITAMIN D3 [Concomitant]
     Active Substance: CHOLECALCIFEROL
     Dosage: UNK
  11. OMEGA-3 FISH OIL [Concomitant]
     Active Substance: FISH OIL\OMEGA-3 FATTY ACIDS
     Dosage: UNK

REACTIONS (3)
  - Dysphonia [Unknown]
  - Oral pain [Unknown]
  - Alopecia [Unknown]
